FAERS Safety Report 18229819 (Version 2)
Quarter: 2020Q3

REPORT INFORMATION
  Report Type: Report from Study
  Country: CO (occurrence: CO)
  Receive Date: 20200903
  Receipt Date: 20200928
  Transmission Date: 20201103
  Serious: Yes (Other)
  Sender: FDA-Public Use
  Company Number: NVSC2020CO013257

PATIENT
  Age: 55 Year
  Sex: Female
  Weight: 61 kg

DRUGS (4)
  1. KISQALI [Suspect]
     Active Substance: RIBOCICLIB
     Indication: BREAST CANCER
     Dosage: 600 MG, QD (3X 200 MG/ 600 MG, STARTED 6 MONTHS AGO)
     Route: 048
     Dates: start: 20200117, end: 20200210
  2. FEMARA [Suspect]
     Active Substance: LETROZOLE
     Indication: BREAST CANCER METASTATIC
     Dosage: 2.5 MG
     Route: 048
     Dates: start: 20190925
  3. KISQALI [Suspect]
     Active Substance: RIBOCICLIB
     Indication: BREAST CANCER METASTATIC
     Dosage: 400 MG, QD (2X 200 MG/ 400 MG)
     Route: 048
     Dates: start: 20190925
  4. FEMARA [Suspect]
     Active Substance: LETROZOLE
     Indication: BREAST CANCER
     Dosage: 2.5 MG, QD
     Route: 048
     Dates: start: 20200117

REACTIONS (27)
  - Diarrhoea [Recovered/Resolved]
  - Chills [Recovered/Resolved]
  - Asphyxia [Recovered/Resolved]
  - Asthenia [Unknown]
  - Abdominal pain [Recovered/Resolved]
  - Blood urine present [Recovered/Resolved]
  - Anosmia [Recovered/Resolved]
  - Pulmonary oedema [Unknown]
  - Haematoma [Unknown]
  - Cystitis haemorrhagic [Recovered/Resolved]
  - Chest discomfort [Recovered/Resolved]
  - COVID-19 [Recovered/Resolved]
  - Inflammation [Recovered/Resolved]
  - Anxiety [Unknown]
  - Blood glucose decreased [Unknown]
  - Haemoglobin decreased [Unknown]
  - Metastases to skin [Unknown]
  - Decreased immune responsiveness [Unknown]
  - Back pain [Unknown]
  - Pyrexia [Recovered/Resolved]
  - Vomiting [Recovered/Resolved]
  - Discomfort [Recovered/Resolved]
  - Platelet count increased [Unknown]
  - White blood cell count decreased [Unknown]
  - Headache [Recovered/Resolved]
  - Cystitis [Unknown]
  - Infection parasitic [Recovered/Resolved]

NARRATIVE: CASE EVENT DATE: 20200118
